FAERS Safety Report 23674234 (Version 1)
Quarter: 2024Q1

REPORT INFORMATION
  Report Type: Spontaneous
  Country: US (occurrence: None)
  Receive Date: 20240326
  Receipt Date: 20240326
  Transmission Date: 20240410
  Serious: Yes (Hospitalization)
  Sender: FDA-Public Use
  Company Number: None

PATIENT
  Sex: Female

DRUGS (7)
  1. REPATHA [Suspect]
     Active Substance: EVOLOCUMAB
     Indication: Hyperlipidaemia
     Route: 058
     Dates: start: 20200804
  2. D3 CAP 50 MCG [Concomitant]
  3. GLIPIZIDE TAB 10MG [Concomitant]
  4. LOSARTAN POT TAB 50MG [Concomitant]
  5. MULTIVITAMIN TAB ADULTS [Concomitant]
  6. OZEMPIC INJ 2/1.5ML [Concomitant]
  7. ZETIA TAB 10MG [Concomitant]

REACTIONS (2)
  - Hospitalisation [None]
  - Therapy interrupted [None]
